FAERS Safety Report 6160360-0 (Version None)
Quarter: 2009Q2

REPORT INFORMATION
  Report Type: 
  Country: None (occurrence: None)
  Receive Date: 20090420
  Receipt Date: 20090302
  Transmission Date: 20091009
  Serious: Yes (Other)
  Sender: FDA-Public Use
  Company Number: FR-PFIZER INC-2009162911

PATIENT
  Age: 53 Year
  Sex: Female

DRUGS (1)
  1. LATANOPROST [Suspect]

REACTIONS (2)
  - MALIGNANT MELANOMA [None]
  - METASTASES TO LIVER [None]
